FAERS Safety Report 10236324 (Version 1)
Quarter: 2014Q1

REPORT INFORMATION
  Report Type: Spontaneous
  Country: US (occurrence: None)
  Receive Date: 20140306
  Receipt Date: 20140306
  Transmission Date: 20141002
  Serious: Yes (Hospitalization, Other)
  Sender: FDA-Public Use
  Company Number: 163-21880-13034715

PATIENT
  Age: 56 Year
  Sex: Male

DRUGS (10)
  1. REVLIMID (LENALIDOMIDE) (25 MILLIGRAM, CAPSULES) [Suspect]
     Indication: PLASMA CELL MYELOMA
     Dosage: 19-SEP-2012 - TEMPORARILY INTERRUPTED
     Route: 048
     Dates: start: 20120919
  2. ACYCLOVIR (ACICLOVIR) (UNKNOWN) [Concomitant]
  3. ALBUTEROL - IPRATROPIUM BROMIDE (COMBIVENT) (UNKNOWN) [Concomitant]
  4. ALLOPURINOL (ALLOPURINOL) (UNKNOWN) [Concomitant]
  5. ATENOLOL (ATENOLOL) (UNKNOWN) [Concomitant]
  6. COUMADIN (WARFARIN SODIUM) (UNKNOWN) [Concomitant]
  7. GABAPENTIN (GABAPENTIN) (UNKNOWN) (GABAPENTIN) [Concomitant]
  8. PROTONIX (UNKNOWN) [Concomitant]
  9. VITAMIN D3 (COLECALCIFEROL) (UNKNOWN) [Concomitant]
  10. ZINC (ZINC) (UNKNOWN) [Concomitant]

REACTIONS (2)
  - White blood cell count decreased [None]
  - Influenza [None]
